FAERS Safety Report 16638093 (Version 1)
Quarter: 2019Q3

REPORT INFORMATION
  Report Type: Report from Study
  Country: US (occurrence: US)
  Receive Date: 20190726
  Receipt Date: 20190726
  Transmission Date: 20191004
  Serious: Yes (Hospitalization)
  Sender: FDA-Public Use
  Company Number: US-ACTELION-A-US2019-193346

PATIENT
  Age: 70 Year
  Sex: Female

DRUGS (1)
  1. OPSUMIT [Suspect]
     Active Substance: MACITENTAN
     Indication: PULMONARY ARTERIAL HYPERTENSION
     Dosage: 10 MG, QD
     Route: 048
     Dates: start: 20190614, end: 2019

REACTIONS (10)
  - Abdominal pain upper [Recovered/Resolved]
  - Weight increased [Unknown]
  - Swelling [Unknown]
  - Cardiac failure [Unknown]
  - Pericardial effusion [Unknown]
  - Blood potassium increased [Recovered/Resolved]
  - Constipation [Recovered/Resolved]
  - Petechiae [Unknown]
  - Dyspnoea [Unknown]
  - Blood potassium decreased [Unknown]

NARRATIVE: CASE EVENT DATE: 2019
